FAERS Safety Report 8913093 (Version 2)
Quarter: 2013Q2

REPORT INFORMATION
  Report Type: Spontaneous
  Country: US (occurrence: US)
  Receive Date: 20121116
  Receipt Date: 20130502
  Transmission Date: 20140414
  Serious: No
  Sender: FDA-Public Use
  Company Number: US-009507513-1211USA000866

PATIENT
  Age: 24 Year
  Sex: Female
  Weight: 90.7 kg

DRUGS (2)
  1. IMPLANON [Suspect]
     Indication: CONTRACEPTION
     Dosage: UNK
     Route: 059
     Dates: start: 20110907, end: 20130222
  2. ALBUTEROL [Concomitant]

REACTIONS (3)
  - Menstruation irregular [Not Recovered/Not Resolved]
  - Medical device complication [Recovered/Resolved]
  - Complication of device removal [Recovered/Resolved]
